FAERS Safety Report 9130878 (Version 1)
Quarter: 2013Q1

REPORT INFORMATION
  Report Type: Spontaneous
  Country: US (occurrence: US)
  Receive Date: 20130301
  Receipt Date: 20130301
  Transmission Date: 20140127
  Serious: Yes (Death)
  Sender: FDA-Public Use
  Company Number: US-INCYTE CORPORATION-2012IN001547

PATIENT
  Age: 85 Year
  Sex: Male
  Weight: 81.18 kg

DRUGS (3)
  1. JAKAFI [Suspect]
     Indication: MYELOPROLIFERATIVE DISORDER
     Dosage: 20 MG, BID
     Route: 048
     Dates: start: 20120220
  2. ANTIHYPERTENSIVES [Concomitant]
  3. DIURETICS [Concomitant]

REACTIONS (4)
  - Death [Fatal]
  - Tremor [Unknown]
  - Palpitations [Unknown]
  - Hyperhidrosis [Unknown]
